FAERS Safety Report 18325830 (Version 1)
Quarter: 2020Q3

REPORT INFORMATION
  Report Type: Spontaneous
  Country: US (occurrence: US)
  Receive Date: 20200929
  Receipt Date: 20200929
  Transmission Date: 20201103
  Serious: Yes (Other)
  Sender: FDA-Public Use
  Company Number: US-ASTRAZENECA-2020SF23523

PATIENT
  Age: 84 Year
  Sex: Female
  Weight: 38.6 kg

DRUGS (2)
  1. FASENRA [Suspect]
     Active Substance: BENRALIZUMAB
     Indication: ASTHMA
     Route: 058
     Dates: start: 20200910
  2. PULMICORT RESPULES [Suspect]
     Active Substance: BUDESONIDE
     Indication: ASTHMA
     Dosage: 0.5 MG/2ML ONE TREATMENT TWICE DAILY
     Route: 055

REACTIONS (6)
  - Fall [Unknown]
  - Head injury [Unknown]
  - Weight decreased [Unknown]
  - Osteoporosis [Unknown]
  - Asthma [Unknown]
  - Drug ineffective [Unknown]

NARRATIVE: CASE EVENT DATE: 2017
